FAERS Safety Report 5627693-5 (Version None)
Quarter: 2008Q1

REPORT INFORMATION
  Report Type: 
  Country: None (occurrence: None)
  Receive Date: 20080214
  Receipt Date: 20080214
  Transmission Date: 20080703
  Serious: Yes (Hospitalization, Other)
  Sender: FDA-Public Use
  Company Number: None

PATIENT
  Age: 57 Year
  Sex: Female
  Weight: 76.6579 kg

DRUGS (2)
  1. AREDIA [Suspect]
     Indication: MULTIPLE MYELOMA
     Dosage: NORMAL INFUSION AMT MONTHLY IV
     Route: 042
     Dates: start: 20070701, end: 20070901
  2. ZOMETA [Suspect]
     Indication: MULTIPLE MYELOMA
     Dosage: 4MGS MONTHLY IV
     Route: 042
     Dates: start: 20070301, end: 20071101

REACTIONS (9)
  - ANAEMIA [None]
  - ARTHRALGIA [None]
  - BLOOD TEST ABNORMAL [None]
  - BONE PAIN [None]
  - CHEST DISCOMFORT [None]
  - INFUSION RELATED REACTION [None]
  - INFUSION SITE PHLEBITIS [None]
  - MYALGIA [None]
  - PAIN [None]
